FAERS Safety Report 21886957 (Version 2)
Quarter: 2023Q1

REPORT INFORMATION
  Report Type: Report from Study
  Country: US (occurrence: None)
  Receive Date: 20230119
  Receipt Date: 20230322
  Transmission Date: 20230418
  Serious: Yes (Other)
  Sender: FDA-Public Use
  Company Number: 2023A008376

PATIENT
  Age: 18749 Day
  Sex: Female

DRUGS (1)
  1. SAPHNELO [Suspect]
     Active Substance: ANIFROLUMAB-FNIA
     Indication: Systemic lupus erythematosus
     Route: 042
     Dates: start: 202110

REACTIONS (6)
  - Seizure [Unknown]
  - Systemic lupus erythematosus [Not Recovered/Not Resolved]
  - COVID-19 [Recovered/Resolved]
  - Nervous system disorder [Unknown]
  - Product dose omission issue [Not Recovered/Not Resolved]
  - Insurance issue [Unknown]

NARRATIVE: CASE EVENT DATE: 20211102
